FAERS Safety Report 15015600 (Version 2)
Quarter: 2018Q2

REPORT INFORMATION
  Report Type: Spontaneous
  Country: US (occurrence: US)
  Receive Date: 20180615
  Receipt Date: 20180629
  Transmission Date: 20180711
  Serious: Yes (Hospitalization, Other)
  Sender: FDA-Public Use
  Company Number: US-WEST-WARD PHARMACEUTICALS CORP.-US-H14001-18-04843

PATIENT
  Age: 75 Year
  Sex: Female

DRUGS (5)
  1. METHOTREXATE. [Suspect]
     Active Substance: METHOTREXATE
     Indication: CONJUNCTIVAL DISORDER
     Route: 065
  2. MYCOPHENOLATE MOFETIL. [Suspect]
     Active Substance: MYCOPHENOLATE MOFETIL
     Indication: IMMUNOMODULATORY THERAPY
     Route: 065
  3. MYCOPHENOLATE MOFETIL. [Suspect]
     Active Substance: MYCOPHENOLATE MOFETIL
     Indication: CONJUNCTIVAL DISORDER
  4. METHOTREXATE. [Suspect]
     Active Substance: METHOTREXATE
     Route: 065
  5. PREDNISONE. [Suspect]
     Active Substance: PREDNISONE
     Indication: OCULAR PEMPHIGOID
     Route: 048

REACTIONS (17)
  - Decreased appetite [Unknown]
  - Pneumonia [Unknown]
  - Rash [Unknown]
  - Abdominal pain [Unknown]
  - Arthralgia [Unknown]
  - Alopecia [Unknown]
  - Nervousness [Unknown]
  - Urinary tract infection [Unknown]
  - Cushingoid [Unknown]
  - Muscular weakness [Unknown]
  - Nausea [Unknown]
  - Anaemia [Unknown]
  - Swelling [Unknown]
  - Conjunctivitis [Recovered/Resolved]
  - Ecchymosis [Unknown]
  - Fatigue [Unknown]
  - Ulcerative keratitis [Recovered/Resolved]
